FAERS Safety Report 8270132-9 (Version None)
Quarter: 2012Q2

REPORT INFORMATION
  Report Type: 
  Country: None (occurrence: None)
  Receive Date: 20120410
  Receipt Date: 20120405
  Transmission Date: 20120825
  Serious: Yes (Death)
  Sender: FDA-Public Use
  Company Number: PHHY2012JP029587

PATIENT
  Age: 48 Year
  Sex: Male

DRUGS (3)
  1. METHYLPREDNISOLONE [Concomitant]
     Indication: LIVER TRANSPLANT
     Dosage: UNK UKN, UNK
  2. PREDNISOLONE [Concomitant]
     Indication: LIVER TRANSPLANT
     Dosage: UNK UKN, UNK
  3. NEORAL [Suspect]
     Indication: LIVER TRANSPLANT
     Dosage: UNK UKN, UNK

REACTIONS (2)
  - DISEASE RECURRENCE [None]
  - ADULT T-CELL LYMPHOMA/LEUKAEMIA [None]
